FAERS Safety Report 6920282-1 (Version None)
Quarter: 2010Q3

REPORT INFORMATION
  Report Type: 
  Country: None (occurrence: None)
  Receive Date: 20100811
  Receipt Date: 20100803
  Transmission Date: 20110219
  Serious: Yes (Hospitalization)
  Sender: FDA-Public Use
  Company Number: JP-AMGEN-QUU424087

PATIENT
  Sex: Male
  Weight: 84 kg

DRUGS (2)
  1. ENBREL [Suspect]
     Indication: RHEUMATOID ARTHRITIS
     Route: 058
     Dates: start: 20081104, end: 20090622
  2. ENBREL [Suspect]
     Route: 058
     Dates: start: 20090623, end: 20100416

REACTIONS (1)
  - HEPATITIS ACUTE [None]
